FAERS Safety Report 12439117 (Version 5)
Quarter: 2017Q1

REPORT INFORMATION
  Report Type: Spontaneous
  Country: US (occurrence: US)
  Receive Date: 20160606
  Receipt Date: 20170313
  Transmission Date: 20170428
  Serious: No
  Sender: FDA-Public Use
  Company Number: US-PFIZER INC-2016264769

PATIENT
  Age: 70 Year
  Sex: Female
  Weight: 67 kg

DRUGS (20)
  1. XANAX [Concomitant]
     Active Substance: ALPRAZOLAM
     Indication: ANXIETY
     Dosage: 5 MG, 1-2 TABLETS (TWICE DAILY AS NEEDED)
     Route: 048
  2. ELAVIL [Concomitant]
     Active Substance: AMITRIPTYLINE HYDROCHLORIDE
     Indication: FIBROMYALGIA
     Dosage: 50 MG, 1X/DAY ((2 TABLETS EVERY NIGHT AT BEDTIME)
     Route: 048
  3. DESYREL [Concomitant]
     Active Substance: TRAZODONE HYDROCHLORIDE
     Indication: SLEEP DISORDER
     Dosage: 50 MG, AS NEEDED (1-2 TABS AT BEDTIME AS NEEDED; MAY TAKE 2 TABLETS IF NEEDED)
     Route: 048
  4. LIDOCAINE. [Concomitant]
     Active Substance: LIDOCAINE
     Dosage: (1-2 GRAMS TO THE AFFECTED AREA 2-4 TIMES A DAY)
     Route: 061
  5. METROCREAM [Concomitant]
     Active Substance: METRONIDAZOLE
     Dosage: UNK, DAILY
     Route: 061
  6. LYRICA [Suspect]
     Active Substance: PREGABALIN
     Dosage: 50 MG, 3X/DAY
     Route: 048
  7. XANAX [Concomitant]
     Active Substance: ALPRAZOLAM
     Dosage: 0.5 MG, AS NEEDED (1/2-1 TABLET TWICE A DAY AS NEEDED)
     Route: 048
     Dates: start: 20170121
  8. WELLBUTRIN XL [Concomitant]
     Active Substance: BUPROPION HYDROCHLORIDE
     Dosage: 150 MG, 1X/DAY (1 TAB EVERY MORNING)
     Route: 048
  9. HYDRODIURIL [Concomitant]
     Active Substance: HYDROCHLOROTHIAZIDE
     Dosage: 25 MG, DAILY (1 TABLET DAILY)
     Route: 048
  10. CELEXA [Concomitant]
     Active Substance: CITALOPRAM HYDROBROMIDE
     Dosage: 20 MG, 1X/DAY (1 TAB DAILY)
     Route: 048
  11. CELEXA [Concomitant]
     Active Substance: CITALOPRAM HYDROBROMIDE
     Dosage: 40 MG, DAILY (TAKE 1 TAB DAILY)
     Route: 048
  12. ASPIRIN 81 [Concomitant]
     Active Substance: ASPIRIN
     Dosage: 81 MG, DAILY (1 TABLET DAILY)
     Route: 048
  13. VITAMIN D3 [Concomitant]
     Active Substance: CHOLECALCIFEROL
     Dosage: 400 IU, DAILY
     Route: 048
  14. ZANAFLEX [Concomitant]
     Active Substance: TIZANIDINE HYDROCHLORIDE
     Indication: MUSCLE DISORDER
     Dosage: 2 MG, AS NEEDED (ONE TABLET THREE TIMES DAILY AS NEEDED)
     Route: 048
  15. VITAZOL [Concomitant]
     Active Substance: METRONIDAZOLE
     Dosage: UNK, DAILY
     Route: 061
  16. ZOCOR [Concomitant]
     Active Substance: SIMVASTATIN
     Dosage: 20 MG, 1X/DAY (ONE TABLET EVERY NIGHT AT BEDTIME)
     Route: 048
  17. ROSADAN [Concomitant]
     Active Substance: METRONIDAZOLE
     Dosage: UNK, DAILY
     Route: 061
  18. LYRICA [Suspect]
     Active Substance: PREGABALIN
     Dosage: 50 MG, 2X/DAY
     Route: 048
  19. SENOKOT-S [Concomitant]
     Active Substance: DOCUSATE SODIUM\SENNOSIDES
     Dosage: 1 DF, DAILY (SENNA: 8.6 MG/ DOCUSATE: 50 MG, DAILY)
     Route: 048
  20. VITAMIN D2 [Concomitant]
     Active Substance: ERGOCALCIFEROL
     Dosage: 50000 IU, WEEKLY
     Route: 048

REACTIONS (3)
  - Therapeutic response unexpected [Unknown]
  - Drug ineffective [Unknown]
  - Pre-existing condition improved [Unknown]
